FAERS Safety Report 6712891-X (Version None)
Quarter: 2010Q2

REPORT INFORMATION
  Report Type: 
  Country: None (occurrence: None)
  Receive Date: 20100505
  Receipt Date: 20100505
  Transmission Date: 20101027
  Serious: Yes (Hospitalization, Other)
  Sender: FDA-Public Use
  Company Number: None

PATIENT
  Age: 7 Month
  Sex: Male
  Weight: 9.5255 kg

DRUGS (2)
  1. CONCENTRATED TYLENOL INFANT DROPS [Suspect]
     Indication: PYREXIA
     Dosage: 0.8 ML EVERY 6 HOURS AS N PO
     Route: 048
     Dates: start: 20100405, end: 20100429
  2. CONCENTRATED TYLENOL INFANT DROPS [Suspect]
     Indication: TEETHING
     Dosage: 0.8 ML EVERY 6 HOURS AS N PO
     Route: 048
     Dates: start: 20100405, end: 20100429

REACTIONS (4)
  - BACTERIAL SEPSIS [None]
  - CONVULSION [None]
  - DIARRHOEA [None]
  - VOMITING [None]
